FAERS Safety Report 5029630-3 (Version None)
Quarter: 2006Q2

REPORT INFORMATION
  Report Type: 
  Country: None (occurrence: None)
  Receive Date: 20060503
  Receipt Date: 20060330
  Transmission Date: 20061013
  Serious: No
  Sender: FDA-Public Use
  Company Number: FACT0600194

PATIENT
  Age: 75 Year
  Sex: Male
  Weight: 93 kg

DRUGS (4)
  1. FACTIVE [Suspect]
     Indication: RESPIRATORY TRACT INFECTION BACTERIAL
     Dosage: 320 MG,QD, ORAL
     Route: 048
  2. MUCINEX [Suspect]
     Indication: RESPIRATORY TRACT INFECTION
     Dosage: 1200 MG,QD, ORAL
     Route: 048
  3. ACIPHEX [Concomitant]
  4. ASPIRIN [Concomitant]

REACTIONS (1)
  - DIARRHOEA [None]
